FAERS Safety Report 4506280-6 (Version None)
Quarter: 2004Q4

REPORT INFORMATION
  Report Type: 
  Country: None (occurrence: None)
  Receive Date: 20041025
  Receipt Date: 20031219
  Transmission Date: 20050328
  Serious: Yes (Other)
  Sender: FDA-Public Use
  Company Number: US-JNJFOC-20031204232

PATIENT
  Age: 67 Year
  Sex: Female
  Weight: 73.9363 kg

DRUGS (4)
  1. REMICADE [Suspect]
     Indication: RHEUMATOID ARTHRITIS
     Dosage: SEE IMAGE, INTRAVENOUS
     Route: 042
     Dates: start: 20030901, end: 20031126
  2. METHOTREXATE [Concomitant]
  3. PREDNISONE [Concomitant]
  4. CELEBREX [Concomitant]

REACTIONS (1)
  - FUNGAL INFECTION [None]
